FAERS Safety Report 7525605-0 (Version None)
Quarter: 2011Q2

REPORT INFORMATION
  Report Type: 
  Country: None (occurrence: None)
  Receive Date: 20110606
  Receipt Date: 20110523
  Transmission Date: 20111010
  Serious: Yes (Hospitalization)
  Sender: FDA-Public Use
  Company Number: PHHY2011NL43945

PATIENT
  Sex: Female

DRUGS (2)
  1. ZOMETA [Suspect]
     Indication: METASTATIC NEOPLASM
     Dosage: 4 MG/ 5ML, ONCE PER 42 DAYS
     Route: 042
     Dates: start: 20090309
  2. ZOMETA [Suspect]
     Dosage: 4 MG/5 ML, ONCE IN 42 DAYS
     Route: 042
     Dates: start: 20110406

REACTIONS (2)
  - ABDOMINAL INFECTION [None]
  - GASTROINTESTINAL DISORDER [None]
